FAERS Safety Report 9150392 (Version 1)
Quarter: 2013Q1

REPORT INFORMATION
  Report Type: Report from Study
  Country: FR (occurrence: FR)
  Receive Date: 20130308
  Receipt Date: 20130308
  Transmission Date: 20140127
  Serious: Yes (Hospitalization)
  Sender: FDA-Public Use
  Company Number: FR-ROCHE-1198378

PATIENT
  Age: 58 Year
  Sex: Female
  Weight: 67 kg

DRUGS (28)
  1. TOCILIZUMAB [Suspect]
     Indication: RHEUMATOID ARTHRITIS
     Dosage: DATE OF LAST DOSE PRIOR TO SAE 10 JAN 2011
     Route: 042
     Dates: start: 20100816
  2. TOCILIZUMAB [Suspect]
     Route: 042
     Dates: start: 20100913
  3. TOCILIZUMAB [Suspect]
     Route: 042
     Dates: start: 20101011
  4. TOCILIZUMAB [Suspect]
     Route: 042
     Dates: start: 20111210
  5. TOCILIZUMAB [Suspect]
     Route: 042
     Dates: start: 20110111
  6. TOCILIZUMAB [Suspect]
     Route: 042
     Dates: start: 20110215
  7. TOCILIZUMAB [Suspect]
     Route: 042
     Dates: start: 20110315
  8. TOCILIZUMAB [Suspect]
     Route: 042
     Dates: start: 20110411
  9. TOCILIZUMAB [Suspect]
     Route: 042
     Dates: start: 20110510
  10. TOCILIZUMAB [Suspect]
     Route: 042
     Dates: start: 20110610
  11. TOCILIZUMAB [Suspect]
     Route: 042
     Dates: start: 20110708
  12. TOCILIZUMAB [Suspect]
     Route: 042
     Dates: start: 20110822
  13. TOCILIZUMAB [Suspect]
     Dosage: 480 MG
     Route: 042
     Dates: start: 20110919
  14. TOCILIZUMAB [Suspect]
     Route: 042
     Dates: start: 20111017
  15. TOCILIZUMAB [Suspect]
     Dosage: 520 MG
     Route: 042
     Dates: start: 20111115
  16. TOCILIZUMAB [Suspect]
     Dosage: 520 MG
     Route: 042
     Dates: start: 20111213
  17. TOCILIZUMAB [Suspect]
     Dosage: 520 MG
     Route: 042
     Dates: start: 20120110
  18. TOCILIZUMAB [Suspect]
     Dosage: 510
     Route: 042
     Dates: start: 20120207
  19. METHOTREXATE [Suspect]
     Indication: RHEUMATOID ARTHRITIS
     Route: 065
     Dates: start: 20100816, end: 20110822
  20. CORTANCYL [Suspect]
     Indication: RHEUMATOID ARTHRITIS
     Route: 065
     Dates: start: 20100528
  21. LEXOMIL [Concomitant]
     Dosage: 0.75 TABLET
     Route: 065
  22. SPECIAFOLDINE [Concomitant]
     Route: 065
  23. SPECIAFOLDINE [Concomitant]
     Route: 065
  24. INEXIUM [Concomitant]
     Route: 065
  25. DICLOFENAC [Concomitant]
     Route: 065
  26. MONOCRIXO [Concomitant]
     Route: 065
  27. BROMAZEPAM [Concomitant]
     Dosage: 0.75 TO 1 TAB
     Route: 065
  28. PANOS [Concomitant]
     Route: 065

REACTIONS (3)
  - Radicular pain [Not Recovered/Not Resolved]
  - Oropharyngeal pain [Recovered/Resolved]
  - Rhinitis [Recovered/Resolved]
